FAERS Safety Report 9342365 (Version 1)
Quarter: 2013Q2

REPORT INFORMATION
  Report Type: Spontaneous
  Country: GB (occurrence: None)
  Receive Date: 20130607
  Receipt Date: 20130607
  Transmission Date: 20140414
  Serious: Yes (Other)
  Sender: FDA-Public Use
  Company Number: FK201301891

PATIENT
  Age: 64 Year
  Sex: Female

DRUGS (2)
  1. PAMIDRONATE [Suspect]
     Indication: OSTEOGENESIS IMPERFECTA
     Route: 042
  2. ZOLEDRONIC ACID (ZOLEDRONIC ACID) [Suspect]
     Indication: OSTEOGENESIS IMPERFECTA
     Route: 042

REACTIONS (4)
  - Femur fracture [None]
  - Off label use [None]
  - Groin pain [None]
  - Pain in extremity [None]
